FAERS Safety Report 7030564-3 (Version None)
Quarter: 2010Q4

REPORT INFORMATION
  Report Type: 
  Country: None (occurrence: None)
  Receive Date: 20101006
  Receipt Date: 20100921
  Transmission Date: 20110411
  Serious: Yes (Other)
  Sender: FDA-Public Use
  Company Number: DE-ROCHE-724717

PATIENT
  Sex: Female
  Weight: 50 kg

DRUGS (3)
  1. BONIVA [Suspect]
     Indication: OSTEOPOROSIS
     Dosage: 3RD APPLICATION ON 6 JUL 2010
     Route: 042
     Dates: start: 20091201
  2. MIRTAZAPIN [Concomitant]
  3. PENTAERYTHRITOL TETRANITRATE [Concomitant]

REACTIONS (1)
  - ALOPECIA [None]
